FAERS Safety Report 9538675 (Version 4)
Quarter: 2013Q4

REPORT INFORMATION
  Report Type: Spontaneous
  Country: IT (occurrence: IT)
  Receive Date: 20130920
  Receipt Date: 20131015
  Transmission Date: 20140711
  Serious: Yes (Hospitalization, Other)
  Sender: FDA-Public Use
  Company Number: PHHY2013IT103753

PATIENT
  Age: 39 Year
  Sex: Male

DRUGS (1)
  1. GILENYA [Suspect]
     Indication: RELAPSING-REMITTING MULTIPLE SCLEROSIS
     Dosage: 0.5 MG, QD
     Route: 048
     Dates: start: 20130916, end: 20130916

REACTIONS (3)
  - Rhythm idioventricular [Recovered/Resolved]
  - Ventricular extrasystoles [Recovered/Resolved]
  - Bradycardia [Recovered/Resolved]
